FAERS Safety Report 14037413 (Version 2)
Quarter: 2018Q4

REPORT INFORMATION
  Report Type: Spontaneous
  Country: US (occurrence: US)
  Receive Date: 20171004
  Receipt Date: 20181122
  Transmission Date: 20190204
  Serious: Yes (Other)
  Sender: FDA-Public Use
  Company Number: US-ASTRAZENECA-2017SE99840

PATIENT
  Age: 24856 Day
  Sex: Female
  Weight: 78.9 kg

DRUGS (17)
  1. ALVESCO [Concomitant]
     Active Substance: CICLESONIDE
     Dates: start: 20101122
  2. ZAFIRLUKAST. [Concomitant]
     Active Substance: ZAFIRLUKAST
     Route: 048
     Dates: start: 20150430
  3. LEVOTHYROXINE. [Concomitant]
     Active Substance: LEVOTHYROXINE
     Dosage: 150.0MG UNKNOWN
     Route: 048
     Dates: start: 20150430
  4. CORTISPORIN [Concomitant]
     Active Substance: BACITRACIN ZINC\HYDROCORTISONE\NEOMYCIN SULFATE\POLYMYXIN B SULFATE
  5. CARDIZEM [Concomitant]
     Active Substance: DILTIAZEM HYDROCHLORIDE
     Route: 048
     Dates: start: 20150430
  6. LEVOXYL [Concomitant]
     Active Substance: LEVOTHYROXINE SODIUM
     Dosage: 200.0UG UNKNOWN
     Dates: start: 20101021
  7. ALBUTEROL. [Concomitant]
     Active Substance: ALBUTEROL
     Dosage: 90.0UG EVERY 4 - 6 HOURS
     Dates: start: 20150326
  8. TRIAMTERENE. [Concomitant]
     Active Substance: TRIAMTERENE
     Dosage: 37.5MG UNKNOWN
     Route: 048
     Dates: start: 20150430, end: 20150827
  9. NEXIUM [Suspect]
     Active Substance: ESOMEPRAZOLE MAGNESIUM
     Indication: GASTROOESOPHAGEAL REFLUX DISEASE
     Route: 048
     Dates: start: 2001, end: 2016
  10. NEXIUM [Suspect]
     Active Substance: ESOMEPRAZOLE MAGNESIUM
     Indication: GASTROOESOPHAGEAL REFLUX DISEASE
     Route: 048
     Dates: start: 20150827
  11. SINGULAIR [Concomitant]
     Active Substance: MONTELUKAST SODIUM
     Dosage: 10.0MG UNKNOWN
     Dates: start: 20101113
  12. AZITHROMYCIN ANHYDROUS. [Concomitant]
     Active Substance: AZITHROMYCIN ANHYDROUS
     Dosage: 250.0MG UNKNOWN
     Dates: start: 20101119
  13. POTASSIUM CHLORIDE. [Concomitant]
     Active Substance: POTASSIUM CHLORIDE
     Dosage: ER 20 MEQ TABLET
     Route: 048
     Dates: end: 20150827
  14. IBUPROFEN. [Concomitant]
     Active Substance: IBUPROFEN
     Dosage: 800.0MG UNKNOWN
     Dates: start: 20110724
  15. LOSARTAN. [Concomitant]
     Active Substance: LOSARTAN
     Route: 048
  16. PROMETHAZINE [Concomitant]
     Active Substance: PROMETHAZINE\PROMETHAZINE HYDROCHLORIDE
     Dates: start: 20101119
  17. PANTOPRAZOLE [Concomitant]
     Active Substance: PANTOPRAZOLE
     Dosage: 40.0MG UNKNOWN
     Dates: start: 20100502

REACTIONS (2)
  - Chronic kidney disease [Unknown]
  - Acute kidney injury [Unknown]

NARRATIVE: CASE EVENT DATE: 20150827
